FAERS Safety Report 8492513-0 (Version None)
Quarter: 2012Q3

REPORT INFORMATION
  Report Type: 
  Country: None (occurrence: None)
  Receive Date: 20120706
  Receipt Date: 20120628
  Transmission Date: 20120928
  Serious: Yes (Hospitalization, Other)
  Sender: FDA-Public Use
  Company Number: FR-ABBOTT-12P-056-0951509-00

PATIENT
  Sex: Male

DRUGS (5)
  1. PENTOXIFYLLINE [Suspect]
     Indication: ARRHYTHMIA
     Dosage: 2 GRAM DAILY
     Route: 048
     Dates: start: 20120131, end: 20120227
  2. DIGOXIN [Suspect]
     Indication: ARRHYTHMIA
     Route: 048
     Dates: start: 20120131, end: 20120227
  3. FENOFIBRATE [Suspect]
     Indication: PRODUCT USED FOR UNKNOWN INDICATION
     Route: 048
     Dates: end: 20120220
  4. LASIX [Suspect]
     Indication: HYPERTENSION
     Route: 048
     Dates: start: 20120131, end: 20120313
  5. IRBESARTAN [Concomitant]
     Indication: HYPERTENSION
     Route: 048

REACTIONS (3)
  - TUBULOINTERSTITIAL NEPHRITIS [None]
  - ATRIAL FIBRILLATION [None]
  - RENAL FAILURE ACUTE [None]
